FAERS Safety Report 5971355-1 (Version None)
Quarter: 2008Q4

REPORT INFORMATION
  Report Type: 
  Country: None (occurrence: None)
  Receive Date: 20081130
  Receipt Date: 20081119
  Transmission Date: 20090506
  Serious: Yes (Other)
  Sender: FDA-Public Use
  Company Number: US-PFIZER INC-2008077086

PATIENT
  Sex: Female
  Weight: 74.8 kg

DRUGS (6)
  1. DEPO-MEDROL [Suspect]
     Indication: ARTHRALGIA
     Dates: start: 20080903, end: 20080903
  2. DEPO-MEDROL [Suspect]
     Indication: ARTHRITIS
  3. DEPO-MEDROL [Suspect]
     Indication: OSTEOARTHRITIS
  4. DEXAMETHASONE [Suspect]
     Indication: OSTEOARTHRITIS
     Dates: start: 20080903, end: 20080903
  5. MARCAINE [Suspect]
     Dates: start: 20080903, end: 20080903
  6. ACETAMINOPHEN, ASPIRIN AND CAFFEINE [Concomitant]
     Indication: HEADACHE

REACTIONS (13)
  - ASTHENOPIA [None]
  - DIARRHOEA [None]
  - DRY EYE [None]
  - ERYTHEMA OF EYELID [None]
  - EYELID OEDEMA [None]
  - FLUSHING [None]
  - HEADACHE [None]
  - HYPOGEUSIA [None]
  - INSOMNIA [None]
  - NASOPHARYNGITIS [None]
  - PALPITATIONS [None]
  - SWOLLEN TONGUE [None]
  - TONGUE DRY [None]
